FAERS Safety Report 9696702 (Version 1)
Quarter: 2013Q4

REPORT INFORMATION
  Report Type: Spontaneous
  Country: US (occurrence: US)
  Receive Date: 20131119
  Receipt Date: 20131119
  Transmission Date: 20140711
  Serious: No
  Sender: FDA-Public Use
  Company Number: US-GILEAD-2007-0014161

PATIENT
  Sex: Female
  Weight: 68.04 kg

DRUGS (13)
  1. LETAIRIS [Suspect]
     Indication: PULMONARY ARTERIAL HYPERTENSION
     Route: 048
     Dates: start: 2007
  2. VENTAVIS [Concomitant]
     Indication: PULMONARY ARTERIAL HYPERTENSION
     Dosage: 6-9 X D
     Route: 055
     Dates: start: 200601
  3. ADVIL [Concomitant]
     Dosage: 200 MG X 2 QPM
     Route: 048
  4. FOSAMAX [Concomitant]
     Route: 048
  5. ZOCOR [Concomitant]
     Route: 048
  6. INDERAL [Concomitant]
     Route: 048
  7. SYNTHROID [Concomitant]
     Route: 048
  8. ^FEMBRT 1/5^ [Concomitant]
     Route: 048
  9. FISH OIL [Concomitant]
     Route: 048
  10. OXYGEN [Concomitant]
     Dosage: HS
     Route: 045
  11. ASPIRIN [Concomitant]
     Route: 048
  12. CALCIUM + D [Concomitant]
     Route: 048
  13. VITAMIN E [Concomitant]
     Route: 048

REACTIONS (1)
  - Oedema [Unknown]
